FAERS Safety Report 4814562-3 (Version None)
Quarter: 2005Q4

REPORT INFORMATION
  Report Type: 
  Country: None (occurrence: None)
  Receive Date: 20051028
  Receipt Date: 20041208
  Transmission Date: 20060501
  Serious: No
  Sender: FDA-Public Use
  Company Number: US-GLAXOSMITHKLINE-A0536619A

PATIENT
  Sex: Female

DRUGS (6)
  1. ADVAIR DISKUS 100/50 [Suspect]
     Indication: ASTHMA
     Route: 055
     Dates: start: 20040701
  2. SPIRIVA [Concomitant]
  3. ALBUTEROL [Concomitant]
  4. NITRO-DUR [Concomitant]
  5. IV ANTIBIOTICS [Concomitant]
  6. CORTICOSTEROIDS [Concomitant]
     Route: 042

REACTIONS (2)
  - ALOPECIA [None]
  - COUGH [None]
